FAERS Safety Report 9629809 (Version 3)
Quarter: 2014Q1

REPORT INFORMATION
  Report Type: Report from Study
  Country: US (occurrence: US)
  Receive Date: 20131017
  Receipt Date: 20140131
  Transmission Date: 20141002
  Serious: Yes (Hospitalization)
  Sender: FDA-Public Use
  Company Number: US-ROCHE-1267993

PATIENT
  Sex: Male

DRUGS (7)
  1. LUCENTIS [Suspect]
     Indication: DIABETIC RETINOPATHY
     Dosage: OD (RIGHT EYE). MOST RECENT DOSE OF RANIBIZUMAB : 11/JUL/2013.
     Route: 065
  2. LUCENTIS [Suspect]
     Indication: DIABETIC RETINAL OEDEMA
  3. AMLODIPINE [Concomitant]
  4. SIMVASTATIN [Concomitant]
  5. LISINOPRIL [Concomitant]
  6. NOVOLOG [Concomitant]
     Dosage: NOVOLOG MIX.
     Route: 065
  7. HYDROCHLOROTHIAZIDE [Concomitant]

REACTIONS (3)
  - Cardiac operation [Unknown]
  - Vision blurred [Unknown]
  - Vitreous floaters [Not Recovered/Not Resolved]
